FAERS Safety Report 20968046 (Version 1)
Quarter: 2022Q2

REPORT INFORMATION
  Report Type: Report from Study
  Country: PK (occurrence: PK)
  Receive Date: 20220616
  Receipt Date: 20220616
  Transmission Date: 20220721
  Serious: Yes (Death)
  Sender: FDA-Public Use
  Company Number: PK-NOVARTISPH-NVSC2022PK138023

PATIENT
  Sex: Female
  Weight: 44 kg

DRUGS (1)
  1. KISQALI [Suspect]
     Active Substance: RIBOCICLIB
     Indication: Breast cancer
     Dosage: 600 MG, QD (THREE TABLETS OF KISQALI 200MG DAILY)
     Route: 048
     Dates: start: 20200303

REACTIONS (1)
  - Death [Fatal]
